FAERS Safety Report 5529852-9 (Version None)
Quarter: 2007Q4

REPORT INFORMATION
  Report Type: 
  Country: None (occurrence: None)
  Receive Date: 20071127
  Receipt Date: 20071115
  Transmission Date: 20080405
  Serious: Yes (Other)
  Sender: FDA-Public Use
  Company Number: TPA2007A02356

PATIENT
  Age: 45 Year
  Sex: Female

DRUGS (4)
  1. ROZEREM [Suspect]
     Indication: INSOMNIA
     Dosage: 8 MG, QHS, PER ORAL
     Route: 048
     Dates: start: 20071114
  2. UNKNOWN DEPRESSION MEDICATION (ANTIDEPRESSANTS) [Concomitant]
  3. WELLBUTRIN XL [Concomitant]
  4. LORAZEPAM [Concomitant]

REACTIONS (4)
  - AMNESIA [None]
  - DRUG EFFECT INCREASED [None]
  - FEELING ABNORMAL [None]
  - LOSS OF CONSCIOUSNESS [None]
